FAERS Safety Report 9761621 (Version 1)
Quarter: 2013Q4

REPORT INFORMATION
  Report Type: Spontaneous
  Country: US (occurrence: US)
  Receive Date: 20131216
  Receipt Date: 20131216
  Transmission Date: 20140711
  Serious: No
  Sender: FDA-Public Use
  Company Number: US-PFIZER INC-2013353624

PATIENT
  Age: 72 Year
  Sex: Female

DRUGS (1)
  1. SUTENT [Suspect]
     Indication: CONNECTIVE TISSUE NEOPLASM
     Dosage: 50 MG, UNK
     Dates: start: 20130613, end: 20130701

REACTIONS (2)
  - Drug intolerance [Unknown]
  - Off label use [Unknown]
